FAERS Safety Report 8321460-X (Version None)
Quarter: 2012Q2

REPORT INFORMATION
  Report Type: 
  Country: None (occurrence: None)
  Receive Date: 20120430
  Receipt Date: 20120430
  Transmission Date: 20120825
  Serious: No
  Sender: FDA-Public Use
  Company Number: None

PATIENT
  Age: 63 Year
  Sex: Male
  Weight: 96.161 kg

DRUGS (2)
  1. GABAPENTIN [Concomitant]
  2. GABAPENTIN [Suspect]
     Indication: MIGRAINE
     Dosage: 2 - 100 MG CAPSULES AT BEDTIME
     Route: 048
     Dates: start: 20120426, end: 20120427

REACTIONS (1)
  - CELLULITIS [None]
